FAERS Safety Report 7460730-4 (Version None)
Quarter: 2011Q2

REPORT INFORMATION
  Report Type: 
  Country: None (occurrence: None)
  Receive Date: 20110505
  Receipt Date: 20110427
  Transmission Date: 20111010
  Serious: Yes (Hospitalization, Other)
  Sender: FDA-Public Use
  Company Number: US-NAPPMUNDI-USA-2011-0066536

PATIENT
  Sex: Female

DRUGS (1)
  1. BUTRANS [Suspect]
     Indication: PAIN
     Dosage: 10 MCG/HR, WEEKLY
     Route: 062
     Dates: start: 20110228, end: 20110402

REACTIONS (6)
  - CONTUSION [None]
  - DISORIENTATION [None]
  - BLOOD POTASSIUM DECREASED [None]
  - DIPLOPIA [None]
  - LETHARGY [None]
  - ROAD TRAFFIC ACCIDENT [None]
